FAERS Safety Report 8131117 (Version 5)
Quarter: 2020Q1

REPORT INFORMATION
  Report Type: Spontaneous
  Country: GB (occurrence: GB)
  Receive Date: 20110912
  Receipt Date: 20200330
  Transmission Date: 20200409
  Serious: Yes (Life-Threatening, Hospitalization, Disabling)
  Sender: FDA-Public Use
  Company Number: GB-ROCHE-800954

PATIENT
  Age: 31 Year
  Sex: Female
  Weight: 63.5 kg

DRUGS (22)
  1. PAROXETINE. [Interacting]
     Active Substance: PAROXETINE
     Indication: POST-TRAUMATIC STRESS DISORDER
  2. MIRTAZAPINE. [Interacting]
     Active Substance: MIRTAZAPINE
     Route: 048
     Dates: start: 20100923, end: 20101108
  3. SEROXAT [Interacting]
     Active Substance: PAROXETINE HYDROCHLORIDE
     Route: 048
     Dates: start: 1999
  4. CODEINE [Interacting]
     Active Substance: CODEINE
     Indication: ANALGESIC THERAPY
     Route: 048
     Dates: start: 20110615, end: 20110723
  5. LORAZEPAM. [Interacting]
     Active Substance: LORAZEPAM
     Indication: SEDATION
     Dosage: DRUG WITHDRAWN
     Route: 048
     Dates: start: 20110224, end: 20110410
  6. PAROXETINE. [Interacting]
     Active Substance: PAROXETINE
     Indication: DEPRESSION
     Route: 048
     Dates: start: 19990801, end: 20110706
  7. PROCYCLIDINE [Interacting]
     Active Substance: PROCYCLIDINE
     Route: 048
     Dates: start: 20110324, end: 20110506
  8. DOMPERIDONE [Interacting]
     Active Substance: DOMPERIDONE
     Indication: PRODUCT USED FOR UNKNOWN INDICATION
     Route: 065
  9. AMITRIPTYLINE [Suspect]
     Active Substance: AMITRIPTYLINE
     Indication: MUSCLE SPASMS
     Route: 065
     Dates: start: 20110810
  10. DIAZEPAM. [Suspect]
     Active Substance: DIAZEPAM
     Indication: MUSCLE SPASMS
     Route: 048
     Dates: start: 20110725
  11. MIRTAZAPINE. [Interacting]
     Active Substance: MIRTAZAPINE
     Indication: DEPRESSION
     Dosage: DRUG WITHDRAWN
     Route: 048
     Dates: start: 20101007, end: 20101012
  12. LORAZEPAM. [Interacting]
     Active Substance: LORAZEPAM
     Route: 048
     Dates: start: 20110523, end: 20110627
  13. TRAMADOL. [Interacting]
     Active Substance: TRAMADOL
     Indication: NECK PAIN
     Dosage: 2008/2009 START DATE, DRUG WITHDRAWN
     Route: 048
     Dates: start: 20081201, end: 20101210
  14. SEROXAT [Interacting]
     Active Substance: PAROXETINE HYDROCHLORIDE
     Route: 048
     Dates: start: 201012
  15. TRAMADOL. [Interacting]
     Active Substance: TRAMADOL
     Indication: ANALGESIC THERAPY
  16. SEROXAT [Interacting]
     Active Substance: PAROXETINE HYDROCHLORIDE
     Indication: PRODUCT USED FOR UNKNOWN INDICATION
     Dosage: INTERRUPTED
     Route: 048
     Dates: start: 1997
  17. SEROXAT [Interacting]
     Active Substance: PAROXETINE HYDROCHLORIDE
     Dosage: DRUG WITHDRAWN
     Route: 048
     Dates: start: 19990801, end: 201105
  18. QUETIAPINE FUMARATE. [Interacting]
     Active Substance: QUETIAPINE FUMARATE
     Indication: PSYCHOTIC DISORDER
     Dosage: DRUG WITHDRAWN
     Route: 048
     Dates: start: 20110224, end: 20110506
  19. PROCYCLIDINE [Interacting]
     Active Substance: PROCYCLIDINE
     Indication: EXTRAPYRAMIDAL DISORDER
     Route: 065
     Dates: start: 20110415
  20. PROCYCLIDINE [Interacting]
     Active Substance: PROCYCLIDINE
     Route: 048
     Dates: start: 20110503, end: 20110510
  21. OMEPRAZOLE. [Interacting]
     Active Substance: OMEPRAZOLE
     Indication: DYSPEPSIA
     Route: 065
     Dates: start: 20110525
  22. CLONAZEPAM. [Interacting]
     Active Substance: CLONAZEPAM
     Indication: SEDATION
     Route: 048
     Dates: start: 20110224, end: 20110410

REACTIONS (48)
  - Drooling [Unknown]
  - Tachycardia [Unknown]
  - Eye pain [Unknown]
  - Aphasia [Not Recovered/Not Resolved]
  - Pruritus [Unknown]
  - Disorientation [Not Recovered/Not Resolved]
  - Visual impairment [Unknown]
  - Parosmia [Unknown]
  - Dizziness [Unknown]
  - Cyanosis [Unknown]
  - Hypoaesthesia oral [Unknown]
  - Muscle disorder [Unknown]
  - Muscle spasms [Not Recovered/Not Resolved]
  - Vision blurred [Unknown]
  - Serotonin syndrome [Not Recovered/Not Resolved]
  - Musculoskeletal stiffness [Unknown]
  - Balance disorder [Unknown]
  - Schizophrenia [Unknown]
  - Sensory loss [Unknown]
  - Paraesthesia [Unknown]
  - Neuroleptic malignant syndrome [Unknown]
  - Headache [Unknown]
  - Drug withdrawal syndrome [Unknown]
  - Limb injury [Unknown]
  - Swollen tongue [Unknown]
  - Feeling of body temperature change [Unknown]
  - Urinary retention [Unknown]
  - Muscle rigidity [Unknown]
  - Speech disorder [Unknown]
  - Incontinence [Not Recovered/Not Resolved]
  - Skin discolouration [Not Recovered/Not Resolved]
  - Gastric pH decreased [Unknown]
  - Gait disturbance [Unknown]
  - Paralysis [Unknown]
  - Psychotic disorder [Unknown]
  - Cogwheel rigidity [Unknown]
  - Dystonia [Unknown]
  - Drug interaction [Unknown]
  - Diarrhoea [Unknown]
  - Arthralgia [Unknown]
  - Agitation [Unknown]
  - Swelling face [Unknown]
  - Hypoaesthesia [Not Recovered/Not Resolved]
  - Hallucinations, mixed [Unknown]
  - Tinnitus [Unknown]
  - Toxicity to various agents [Unknown]
  - Mydriasis [Unknown]
  - Dyskinesia [Unknown]

NARRATIVE: CASE EVENT DATE: 2008
